FAERS Safety Report 16862986 (Version 3)
Quarter: 2019Q4

REPORT INFORMATION
  Report Type: Spontaneous
  Country: PT (occurrence: PT)
  Receive Date: 20190927
  Receipt Date: 20191111
  Transmission Date: 20200122
  Serious: Yes (Hospitalization, Other)
  Sender: FDA-Public Use
  Company Number: PT-MYLANLABS-2019M1089942

PATIENT
  Age: 73 Year
  Sex: Male

DRUGS (2)
  1. AZITHROMYCIN ANHYDROUS. [Suspect]
     Active Substance: AZITHROMYCIN ANHYDROUS
     Indication: RESPIRATORY TRACT INFECTION
     Dosage: UNK
     Route: 065
  2. CEFIXIME. [Suspect]
     Active Substance: CEFIXIME
     Indication: RESPIRATORY TRACT INFECTION
     Dosage: UNK
     Route: 065

REACTIONS (13)
  - Disseminated Bacillus Calmette-Guerin infection [Recovering/Resolving]
  - Normochromic anaemia [Unknown]
  - Chills [Unknown]
  - Cachexia [Unknown]
  - Respiratory rate increased [Unknown]
  - Normocytic anaemia [Unknown]
  - Condition aggravated [Recovering/Resolving]
  - Kidney infection [Unknown]
  - Pyrexia [Unknown]
  - Hepatitis cholestatic [Unknown]
  - Medication error [Recovered/Resolved]
  - Infection [Unknown]
  - Inflammation [Unknown]
